FAERS Safety Report 22393340 (Version 1)
Quarter: 2023Q2

REPORT INFORMATION
  Report Type: Spontaneous
  Country: US (occurrence: US)
  Receive Date: 20230601
  Receipt Date: 20230601
  Transmission Date: 20230722
  Serious: No
  Sender: FDA-Public Use
  Company Number: US-TEVA-2023-US-2888414

PATIENT
  Age: 7 Year

DRUGS (1)
  1. CEPHALEXIN [Suspect]
     Active Substance: CEPHALEXIN
     Indication: Pharyngitis streptococcal
     Dosage: 250/5 MG/ML, FOR 10 DAYS
     Route: 048
     Dates: start: 20230505, end: 202305

REACTIONS (1)
  - Vomiting projectile [Unknown]

NARRATIVE: CASE EVENT DATE: 20230511
